FAERS Safety Report 9333431 (Version 2)
Quarter: 2013Q4

REPORT INFORMATION
  Report Type: Spontaneous
  Country: US (occurrence: US)
  Receive Date: 20130606
  Receipt Date: 20131107
  Transmission Date: 20140711
  Serious: Yes (Death, Hospitalization)
  Sender: FDA-Public Use
  Company Number: US-B.I. PHARMACEUTICALS,INC./RIDGEFIELD-2013-BI-15627BP

PATIENT
  Age: 86 Year
  Sex: Male
  Weight: 74.84 kg

DRUGS (3)
  1. PRADAXA [Suspect]
     Indication: ATRIAL FIBRILLATION
     Dosage: 300 MG
     Route: 048
     Dates: start: 201107, end: 20121010
  2. BYSTOLIC [Concomitant]
     Dosage: 5 MG
     Route: 048
  3. REQUIP [Concomitant]
     Dosage: 0.5 MG
     Route: 048

REACTIONS (1)
  - Subdural haematoma [Fatal]
